FAERS Safety Report 15170695 (Version 2)
Quarter: 2018Q3

REPORT INFORMATION
  Report Type: Spontaneous
  Country: DE (occurrence: DE)
  Receive Date: 20180720
  Receipt Date: 20180726
  Transmission Date: 20181010
  Serious: Yes (Hospitalization, Other)
  Sender: FDA-Public Use
  Company Number: DE-PROCTER+GAMBLE_PHARMACEUTICALS-GRP10000051

PATIENT
  Age: 71 Year
  Sex: Female
  Weight: 78 kg

DRUGS (6)
  1. FALITHROM [Suspect]
     Active Substance: PHENPROCOUMON
     Indication: ATRIAL FIBRILLATION
     Dosage: 16.5 MG, Q WEEK
     Route: 048
     Dates: start: 20091203, end: 20100415
  2. PHENPROCOUMON [Suspect]
     Active Substance: PHENPROCOUMON
     Indication: ATRIAL FIBRILLATION
     Dosage: UNK
     Route: 048
     Dates: start: 20091203, end: 20100504
  3. BISOPROLOL [Suspect]
     Active Substance: BISOPROLOL
     Dosage: 5 MG, QD
     Route: 048
     Dates: start: 20100506
  4. BISOPROLOL [Suspect]
     Active Substance: BISOPROLOL
     Indication: ATRIAL FIBRILLATION
     Dosage: 2.5 MG, BID
     Route: 048
     Dates: start: 20091203, end: 20100505
  5. FALITHROM [Suspect]
     Active Substance: PHENPROCOUMON
     Dosage: 15 MG, Q WEEK
     Route: 048
     Dates: start: 20100416, end: 20100504
  6. RISEDRONATE SODIUM ? BP [Suspect]
     Active Substance: RISEDRONATE SODIUM
     Indication: OSTEOPOROSIS
     Dosage: 35 MG, Q WEEK
     Route: 048
     Dates: start: 20080615, end: 20100505

REACTIONS (17)
  - Acute hepatic failure [Not Recovered/Not Resolved]
  - Abdominal distension [Unknown]
  - Overdose [Unknown]
  - Jaundice [Not Recovered/Not Resolved]
  - Prothrombin time prolonged [Recovered/Resolved]
  - General physical condition abnormal [Unknown]
  - Drug-induced liver injury [Recovered/Resolved]
  - Drug-induced liver injury [Recovered/Resolved]
  - Decreased appetite [Unknown]
  - Abdominal distension [Not Recovered/Not Resolved]
  - Drug-induced liver injury [Recovered/Resolved]
  - Decreased appetite [Not Recovered/Not Resolved]
  - Performance status decreased [Not Recovered/Not Resolved]
  - Jaundice [Not Recovered/Not Resolved]
  - Faeces pale [Not Recovered/Not Resolved]
  - Vomiting [Not Recovered/Not Resolved]
  - Heart rate increased [Unknown]

NARRATIVE: CASE EVENT DATE: 20100504
